FAERS Safety Report 5992587-2 (Version None)
Quarter: 2008Q4

REPORT INFORMATION
  Report Type: 
  Country: None (occurrence: None)
  Receive Date: 20081202
  Receipt Date: 20080227
  Transmission Date: 20090506
  Serious: Yes (Other)
  Sender: FDA-Public Use
  Company Number: WAES 0708USA02983

PATIENT
  Age: 48 Year
  Sex: Female

DRUGS (2)
  1. FOSAMAX [Suspect]
     Indication: OSTEOPOROSIS
     Dosage: PO
     Route: 048
     Dates: start: 20010101
  2. ACTONEL [Suspect]
     Dates: start: 20020101, end: 20040101

REACTIONS (9)
  - ANXIETY [None]
  - DENTAL FISTULA [None]
  - DEPRESSION [None]
  - GINGIVAL ABSCESS [None]
  - HEADACHE [None]
  - INFECTION [None]
  - MOUTH ULCERATION [None]
  - OSTEONECROSIS [None]
  - TOOTH FRACTURE [None]
